FAERS Safety Report 15753584 (Version 1)
Quarter: 2018Q4

REPORT INFORMATION
  Report Type: Spontaneous
  Country: US (occurrence: US)
  Receive Date: 20181222
  Receipt Date: 20181222
  Transmission Date: 20190205
  Serious: No
  Sender: FDA-Public Use
  Company Number: US-009507513-1812USA010660

PATIENT
  Age: 61 Year
  Sex: Male

DRUGS (11)
  1. HYDROCHLOROTHIAZIDE AND LISINOPRIL [Concomitant]
     Active Substance: HYDROCHLOROTHIAZIDE\LISINOPRIL
     Indication: HYPERTENSION
     Dosage: UNK
  2. MONTELUKAST [Concomitant]
     Active Substance: MONTELUKAST SODIUM
     Indication: ASTHMA
     Dosage: UNK
  3. REBETOL [Suspect]
     Active Substance: RIBAVIRIN
     Indication: CHRONIC HEPATITIS C
     Dosage: UNK
     Route: 048
     Dates: end: 2015
  4. RANITIDINE. [Concomitant]
     Active Substance: RANITIDINE
     Indication: GASTROOESOPHAGEAL REFLUX DISEASE
     Dosage: UNK
  5. CYCLOBENZAPRINE HYDROCHLORIDE. [Concomitant]
     Active Substance: CYCLOBENZAPRINE HYDROCHLORIDE
     Indication: BACK PAIN
     Dosage: UNK, PRN
  6. LEDIPASVIR [Suspect]
     Active Substance: LEDIPASVIR
     Indication: CHRONIC HEPATITIS C
     Dosage: UNK
     Dates: end: 2015
  7. CITALOPRAM [Concomitant]
     Active Substance: CITALOPRAM HYDROBROMIDE
     Indication: DEPRESSION
     Dosage: UNK
  8. IBUPROFEN. [Concomitant]
     Active Substance: IBUPROFEN
     Indication: BACK PAIN
     Dosage: UNK, PRN
  9. SOFOSBUVIR [Suspect]
     Active Substance: SOFOSBUVIR
     Indication: CHRONIC HEPATITIS C
     Dosage: UNK
     Dates: end: 2015
  10. ALBUTEROL. [Concomitant]
     Active Substance: ALBUTEROL
     Indication: ASTHMA
     Dosage: UNK
  11. ACETAMINOPHEN (+) HYDROCODONE BITARTRATE [Concomitant]
     Active Substance: ACETAMINOPHEN\HYDROCODONE BITARTRATE
     Indication: BACK PAIN
     Dosage: UNK, PRN

REACTIONS (1)
  - Oral lichen planus [Unknown]

NARRATIVE: CASE EVENT DATE: 2015
